FAERS Safety Report 23337484 (Version 1)
Quarter: 2023Q4

REPORT INFORMATION
  Report Type: Spontaneous
  Country: US (occurrence: US)
  Receive Date: 20231226
  Receipt Date: 20231226
  Transmission Date: 20240110
  Serious: Yes (Other)
  Sender: FDA-Public Use
  Company Number: US-UCBSA-2023060312

PATIENT
  Sex: Female

DRUGS (2)
  1. KEPPRA [Suspect]
     Active Substance: LEVETIRACETAM
     Indication: Epilepsy
     Dosage: 2000 MILLIGRAMS A DAY
  2. KEPPRA [Suspect]
     Active Substance: LEVETIRACETAM
     Dosage: 3000 MILLIGRAM A DAY

REACTIONS (7)
  - Seizure [Unknown]
  - Syncope [Unknown]
  - Fall [Unknown]
  - Decreased appetite [Unknown]
  - Somnolence [Unknown]
  - Weight decreased [Unknown]
  - Product use issue [Unknown]
